FAERS Safety Report 18340876 (Version 1)
Quarter: 2020Q4

REPORT INFORMATION
  Report Type: Spontaneous
  Country: NL (occurrence: NL)
  Receive Date: 20201003
  Receipt Date: 20201003
  Transmission Date: 20210113
  Serious: Yes (Other)
  Sender: FDA-Public Use
  Company Number: NL-ACCORD-203877

PATIENT
  Sex: Male
  Weight: 76 kg

DRUGS (18)
  1. ALLOPURINOL. [Concomitant]
     Active Substance: ALLOPURINOL
  2. GLICLAZIDE [Concomitant]
     Active Substance: GLICLAZIDE
     Dosage: STRENGTH: 30 MG, MGA
  3. RUPATADINE/RUPATADINE FUMARATE [Concomitant]
     Active Substance: RUPATADINE FUMARATE
     Dosage: STRENGTH: 10 MG
  4. MONTELUKAST [Concomitant]
     Active Substance: MONTELUKAST SODIUM
     Dosage: STRENGTH: 4 MG, GRANULATE
  5. BETAMETHASONE. [Concomitant]
     Active Substance: BETAMETHASONE
  6. PARACETAMOL [Concomitant]
     Active Substance: ACETAMINOPHEN
  7. PREDNISOLONE. [Concomitant]
     Active Substance: PREDNISOLONE
     Dosage: TABLET, 30 MG (MILLIGRAM), STRENGTH: 30 MG
  8. OLMESARTAN/AMLODIPINE [Suspect]
     Active Substance: AMLODIPINE BESYLATE\OLMESARTAN MEDOXOMIL
     Indication: HYPERTENSION
     Dosage: 1DD1, STRENGTH: 40 / 5MG
     Dates: start: 2020, end: 20200701
  9. COLECALCIFEROL [Concomitant]
     Active Substance: CHOLECALCIFEROL
  10. ATORVASTATIN [Concomitant]
     Active Substance: ATORVASTATIN
     Dosage: STRENGTH: 10 MG
  11. ATROPINE. [Concomitant]
     Active Substance: ATROPINE
     Dosage: EYE DROPS, 10 MG/ML (MILLIGRAM PER MILLILITER), STRENGTH: 10 MG/ML
  12. PREDNISOLONE. [Concomitant]
     Active Substance: PREDNISOLONE
     Dosage: EYE DROPS, 10 MG/ML (MILLIGRAM PER MILLILITER),STRENGTH: 10MG / ML, OPHTHALMIC, SUSP
  13. AMITRIPTYLINE [Concomitant]
     Active Substance: AMITRIPTYLINE
  14. METOPROLOL. [Concomitant]
     Active Substance: METOPROLOL
  15. UMECLIDINIUM [Concomitant]
     Active Substance: UMECLIDINIUM BROMIDE
     Dosage: STRENGTH: 55 UG / DO
     Route: 055
  16. PLANTAGO OVATA/PLANTAGO OVATA HUSK [Concomitant]
     Dosage: STRENGTH: 3.25 G, GRANULATE
  17. HYDROCHLOROTHIAZIDE. [Concomitant]
     Active Substance: HYDROCHLOROTHIAZIDE
  18. METFORMIN [Concomitant]
     Active Substance: METFORMIN HYDROCHLORIDE

REACTIONS (2)
  - Diarrhoea [Recovering/Resolving]
  - Intestinal villi atrophy [Recovering/Resolving]
